FAERS Safety Report 13059873 (Version 4)
Quarter: 2017Q3

REPORT INFORMATION
  Report Type: Spontaneous
  Country: US (occurrence: US)
  Receive Date: 20161223
  Receipt Date: 20170912
  Transmission Date: 20171127
  Serious: Yes (Hospitalization, Other)
  Sender: FDA-Public Use
  Company Number: US-JAZZ-2016-US-023074

PATIENT
  Age: 26 Year
  Sex: Male
  Weight: 54.42 kg

DRUGS (6)
  1. XYREM [Suspect]
     Active Substance: SODIUM OXYBATE
     Indication: SOMNOLENCE
     Dosage: 4.5 G, BID
     Route: 048
     Dates: start: 201612
  2. NUVIGIL [Concomitant]
     Active Substance: ARMODAFINIL
  3. XYREM [Suspect]
     Active Substance: SODIUM OXYBATE
     Indication: NARCOLEPSY
     Dosage: 2.25G, BID
     Route: 048
     Dates: start: 20161119, end: 2016
  4. MODAFINIL. [Concomitant]
     Active Substance: MODAFINIL
  5. VITAMIN D3 AGEPHA [Concomitant]
  6. XYREM [Suspect]
     Active Substance: SODIUM OXYBATE
     Indication: CATAPLEXY
     Dosage: 3.75 G, BID
     Route: 048

REACTIONS (7)
  - Hospitalisation [Unknown]
  - Feeling abnormal [Not Recovered/Not Resolved]
  - Sleep paralysis [Not Recovered/Not Resolved]
  - Feeling drunk [Recovered/Resolved]
  - Dizziness [Unknown]
  - Fatigue [Not Recovered/Not Resolved]
  - Hangover [Recovering/Resolving]

NARRATIVE: CASE EVENT DATE: 201611
